FAERS Safety Report 4883262-6 (Version None)
Quarter: 2006Q1

REPORT INFORMATION
  Report Type: 
  Country: None (occurrence: None)
  Receive Date: 20060112
  Receipt Date: 20060103
  Transmission Date: 20060701
  Serious: Yes (Hospitalization)
  Sender: FDA-Public Use
  Company Number: 2006RR-01440

PATIENT
  Age: 59 Year
  Sex: Female

DRUGS (2)
  1. ACETAMINOPHEN [Suspect]
     Indication: HERNIA REPAIR
     Dosage: INTRAVENOUS
     Route: 042
  2. CO-AMOXICLAV TABLET 625MG (CLAVULANIC ACID, AMOXICILLIN TRIHYDRATE) [Suspect]
     Dosage: INTRAVENOUS
     Route: 042

REACTIONS (6)
  - ANAPHYLACTIC REACTION [None]
  - BRONCHOSPASM [None]
  - ERYTHEMA [None]
  - HYPOTENSION [None]
  - PROCEDURAL COMPLICATION [None]
  - TRYPTASE INCREASED [None]
